FAERS Safety Report 9126821 (Version 1)
Quarter: 2013Q1

REPORT INFORMATION
  Report Type: Spontaneous
  Country: IT (occurrence: IT)
  Receive Date: 20130122
  Receipt Date: 20130122
  Transmission Date: 20140127
  Serious: Yes (Other)
  Sender: FDA-Public Use
  Company Number: IT-TEVA-381131ISR

PATIENT
  Age: 62 Year
  Sex: Male

DRUGS (1)
  1. OXALIPLATINO [Suspect]
     Indication: COLON NEOPLASM
     Dosage: 150 MILLIGRAM DAILY;
     Route: 041
     Dates: start: 20120912, end: 20130109

REACTIONS (4)
  - Loss of consciousness [Recovered/Resolved]
  - Pallor [Recovered/Resolved]
  - Hyperhidrosis [Recovered/Resolved]
  - Hypotension [Recovered/Resolved]
